FAERS Safety Report 8474867-4 (Version None)
Quarter: 2012Q2

REPORT INFORMATION
  Report Type: 
  Country: None (occurrence: None)
  Receive Date: 20120628
  Receipt Date: 20120622
  Transmission Date: 20120825
  Serious: Yes (Other)
  Sender: FDA-Public Use
  Company Number: US-PFIZER INC-2012151333

PATIENT

DRUGS (12)
  1. BACLOFEN [Concomitant]
     Dosage: 20 MG, 3X/DAY (1 TID)
  2. CELEXA [Concomitant]
     Dosage: 20 MG, 3X/DAY
  3. AMITRIPTYLINE [Concomitant]
     Dosage: 100 MG, UNK
  4. XANAX [Concomitant]
     Dosage: 1 MG, 3X/DAY
     Route: 048
  5. MORPHINE [Concomitant]
     Dosage: 30 MG, ONCE EVERY 6 HOURS
  6. OXYCONTIN [Concomitant]
     Dosage: 60 MG, 2X/DAY
  7. OMEPRAZOLE [Concomitant]
     Dosage: 20 MG, UNK
  8. ABILIFY [Concomitant]
     Dosage: 2 MG, UNK
  9. DIAZEPAM [Concomitant]
     Dosage: 5 MG, 3X/DAY
  10. FERROUS SULFATE [Concomitant]
     Dosage: 325 MG, 2X/DAY (1 BID)
  11. LYRICA [Suspect]
     Dosage: 150 MG, 2X/DAY
  12. CRANBERRY [Concomitant]
     Dosage: MV

REACTIONS (7)
  - FIBROMYALGIA [None]
  - PLICA SYNDROME [None]
  - HIATUS HERNIA [None]
  - RESTLESS LEGS SYNDROME [None]
  - ECZEMA [None]
  - PAIN [None]
  - INTERVERTEBRAL DISC DEGENERATION [None]
